FAERS Safety Report 4745307-3 (Version None)
Quarter: 2005Q3

REPORT INFORMATION
  Report Type: 
  Country: None (occurrence: None)
  Receive Date: 20050812
  Receipt Date: 20050802
  Transmission Date: 20060218
  Serious: Yes (Death, Hospitalization)
  Sender: FDA-Public Use
  Company Number: 2005-05-0481

PATIENT
  Age: 80 Year
  Sex: Male

DRUGS (7)
  1. TEMOZOLOMIDE CAPSULES [Suspect]
     Indication: GLIOBLASTOMA MULTIFORME
     Dosage: SEE IMAGE
     Route: 048
  2. DEXAMETHASONE [Concomitant]
  3. RANITIDINE [Concomitant]
  4. EPILUM [Concomitant]
  5. CLOBAZAM [Concomitant]
  6. BENDROFLUAZIDE [Concomitant]
  7. ATORVASTATIN CALCIUM [Concomitant]

REACTIONS (6)
  - BRONCHOPNEUMONIA [None]
  - CORONARY ARTERY DISEASE [None]
  - COUGH [None]
  - FATIGUE [None]
  - LOWER RESPIRATORY TRACT INFECTION [None]
  - MYOCARDIAL INFARCTION [None]
